FAERS Safety Report 14259484 (Version 1)
Quarter: 2017Q4

REPORT INFORMATION
  Report Type: Spontaneous
  Country: US (occurrence: US)
  Receive Date: 20171207
  Receipt Date: 20171207
  Transmission Date: 20180321
  Serious: No
  Sender: FDA-Public Use
  Company Number: US-ASTRAZENECA-2017SF23071

PATIENT
  Sex: Female

DRUGS (1)
  1. BYDUREON [Suspect]
     Active Substance: EXENATIDE
     Indication: TYPE 2 DIABETES MELLITUS
     Route: 058

REACTIONS (8)
  - Muscle twitching [Unknown]
  - Injection site pain [Unknown]
  - Diarrhoea [Unknown]
  - Tinnitus [Unknown]
  - Malaise [Unknown]
  - Headache [Unknown]
  - Injection site mass [Not Recovered/Not Resolved]
  - Formication [Unknown]
